FAERS Safety Report 8155576 (Version 2)
Quarter: 2013Q2

REPORT INFORMATION
  Report Type: Spontaneous
  Country: US (occurrence: US)
  Receive Date: 20110926
  Receipt Date: 20130626
  Transmission Date: 20140414
  Serious: Yes (Hospitalization, Other)
  Sender: FDA-Public Use
  Company Number: US-PFIZER INC-2011221750

PATIENT
  Age: 71 Year
  Sex: Female

DRUGS (1)
  1. AMLODIPINE BESILATE [Suspect]
     Indication: HYPERTENSION
     Dosage: 5 MG, UNK
     Route: 065

REACTIONS (1)
  - Toxic epidermal necrolysis [Unknown]
